FAERS Safety Report 9203058 (Version 1)
Quarter: 2013Q2

REPORT INFORMATION
  Report Type: Spontaneous
  Country: BR (occurrence: BR)
  Receive Date: 20130402
  Receipt Date: 20130402
  Transmission Date: 20140414
  Serious: Yes (Other)
  Sender: FDA-Public Use
  Company Number: BR-AMGEN-BRASP2013021852

PATIENT
  Age: 13 Year
  Sex: Female
  Weight: 62 kg

DRUGS (3)
  1. ENBREL [Suspect]
     Indication: RHEUMATOID ARTHRITIS
     Dosage: 50 MG, 1X/WEEK
     Dates: start: 2011, end: 201212
  2. NAPROXEN [Concomitant]
     Indication: PAIN
     Dosage: UNK
  3. NAPROXEN [Concomitant]
     Indication: INFLAMMATION

REACTIONS (3)
  - Rheumatoid arthritis [Unknown]
  - Tuberculin test positive [Unknown]
  - Injection site swelling [Unknown]
